FAERS Safety Report 7781434-4 (Version None)
Quarter: 2011Q3

REPORT INFORMATION
  Report Type: 
  Country: None (occurrence: None)
  Receive Date: 20110923
  Receipt Date: 20110918
  Transmission Date: 20111222
  Serious: Yes (Other)
  Sender: FDA-Public Use
  Company Number: AE-11-09

PATIENT
  Age: 55 Year
  Sex: Male

DRUGS (3)
  1. ACYCLOVIR [Suspect]
     Indication: KERATITIS HERPETIC
     Dosage: 400 MG, TWICE DAILY,ORAL
     Route: 048
  2. MYCOPHENOLATE MOFETIL [Suspect]
     Indication: KERATITIS HERPETIC
  3. ORAL STEROID 30 MG (SPECIFIC MEDICATION/DOSAGE FORM/MANUFACTURER UNKNO [Suspect]
     Indication: KERATITIS HERPETIC
     Dosage: 30 MG, ONCE DAILY, ORAL
     Route: 048

REACTIONS (5)
  - LOSS OF CONSCIOUSNESS [None]
  - HYPERTENSION [None]
  - CORNEAL GRAFT REJECTION [None]
  - GRAND MAL CONVULSION [None]
  - NEUROTOXICITY [None]
